FAERS Safety Report 21403301 (Version 1)
Quarter: 2022Q4

REPORT INFORMATION
  Report Type: Spontaneous
  Country: CA (occurrence: None)
  Receive Date: 20221001
  Receipt Date: 20221001
  Transmission Date: 20230113
  Serious: Yes (Other)
  Sender: FDA-Public Use
  Company Number: None

PATIENT
  Age: 68 Year
  Sex: Female
  Weight: 94.5 kg

DRUGS (6)
  1. IBRANCE [Suspect]
     Active Substance: PALBOCICLIB
     Indication: Breast cancer metastatic
     Dosage: OTHER QUANTITY : 1 CAPSULE(S);?FREQUENCY : DAILY;?
     Route: 048
     Dates: start: 20220815, end: 20220912
  2. FULVESTRANT [Suspect]
     Active Substance: FULVESTRANT
  3. VASOTEC [Concomitant]
     Active Substance: ENALAPRIL MALEATE
  4. RENEDIL [Concomitant]
  5. ASPIRIN [Concomitant]
     Active Substance: ASPIRIN
  6. VITAMIN B12 [Concomitant]
     Active Substance: CYANOCOBALAMIN

REACTIONS (5)
  - Injection site urticaria [None]
  - Diarrhoea [None]
  - Rash pruritic [None]
  - Rash [None]
  - Vasculitis [None]

NARRATIVE: CASE EVENT DATE: 20220915
